FAERS Safety Report 12907296 (Version 1)
Quarter: 2016Q4

REPORT INFORMATION
  Report Type: Spontaneous
  Country: BR (occurrence: BR)
  Receive Date: 20161103
  Receipt Date: 20161103
  Transmission Date: 20170207
  Serious: Yes (Death)
  Sender: FDA-Public Use
  Company Number: BR-ACTELION-A-CH2016-144538

PATIENT
  Age: 16 Year
  Sex: Female

DRUGS (2)
  1. ZAVESCA [Suspect]
     Active Substance: MIGLUSTAT
     Indication: NIEMANN-PICK DISEASE
     Dosage: 600 MG, QD
     Route: 048
     Dates: start: 20090110
  2. ZAVESCA [Suspect]
     Active Substance: MIGLUSTAT
     Dosage: 300 MG, QD
     Route: 048
     Dates: end: 201605

REACTIONS (4)
  - Disease progression [Fatal]
  - Product supply issue [Unknown]
  - Niemann-Pick disease [Fatal]
  - Condition aggravated [Fatal]
